FAERS Safety Report 12300173 (Version 1)
Quarter: 2016Q2

REPORT INFORMATION
  Report Type: Report from Study
  Country: US (occurrence: US)
  Receive Date: 20160425
  Receipt Date: 20160425
  Transmission Date: 20160815
  Serious: Yes (Hospitalization, Other)
  Sender: FDA-Public Use
  Company Number: ADR-2015-00661

PATIENT
  Age: 46 Year
  Sex: Male

DRUGS (34)
  1. BACLOFEN. [Suspect]
     Active Substance: BACLOFEN
     Route: 048
  2. ASCORBIC ACID. [Suspect]
     Active Substance: ASCORBIC ACID
     Route: 048
  3. BACLOFEN. [Suspect]
     Active Substance: BACLOFEN
     Route: 037
  4. BACLOFEN. [Suspect]
     Active Substance: BACLOFEN
     Route: 037
  5. HYDROCORTISONE 2.5% OINTMENT [Suspect]
     Active Substance: HYDROCORTISONE
     Route: 061
  6. DETROL LA [Suspect]
     Active Substance: TOLTERODINE TARTRATE
     Route: 048
  7. DOCUSATE SODIUM. [Suspect]
     Active Substance: DOCUSATE SODIUM
     Route: 048
  8. DAKINS HALF [Suspect]
     Active Substance: SODIUM HYPOCHLORITE
     Route: 065
  9. SYNTHROID [Suspect]
     Active Substance: LEVOTHYROXINE SODIUM
     Route: 048
  10. MINOCIN [Suspect]
     Active Substance: MINOCYCLINE HYDROCHLORIDE
     Route: 048
  11. RIFAMPIN. [Suspect]
     Active Substance: RIFAMPIN
     Route: 048
  12. CLONIDINE HCL [Suspect]
     Active Substance: CLONIDINE HYDROCHLORIDE
     Dosage: 0.1 MG TABLET ONE TABLET BY MOUTH EVERY OTHER DAY
     Route: 048
  13. CICLOPIROX. [Suspect]
     Active Substance: CICLOPIROX
     Dosage: APPLY TO SCALP EVERY OTHER DAY
     Route: 061
  14. DETROL LA [Suspect]
     Active Substance: TOLTERODINE TARTRATE
     Route: 048
  15. IMIPRAMINE [Suspect]
     Active Substance: IMIPRAMINE
     Route: 048
  16. VALIUM [Suspect]
     Active Substance: DIAZEPAM
     Route: 048
  17. KETOCONAZOLE 2 PERCENT TOPICAL CREAM [Suspect]
     Active Substance: KETOCONAZOLE
     Route: 061
  18. LIORESAL [Suspect]
     Active Substance: BACLOFEN
     Dosage: 879.8MCG/DAY
     Route: 037
  19. BETAMETHASONE DIPROPIONATE 0.05% LOTION [Suspect]
     Active Substance: BETAMETHASONE DIPROPIONATE
     Route: 061
  20. BACTRIM DS [Suspect]
     Active Substance: SULFAMETHOXAZOLE\TRIMETHOPRIM
     Dosage: SULFAMETHOXAZOLE 800 MG TRIMETHOPRIM 160 MG TABLET ONE TABLET BY MOUTH DAILY
     Route: 048
  21. SULFACETAMIDE SODIUM-SULFUR 10%-5% TOPICAL CLEANSER [Suspect]
     Active Substance: SULFACETAMIDE SODIUM\SULFUR
     Route: 061
  22. LEXAPRO [Suspect]
     Active Substance: ESCITALOPRAM OXALATE
     Route: 048
  23. POTASSIUM [Suspect]
     Active Substance: POTASSIUM
     Route: 048
  24. NYSTATIN 100,00 UNIT/GRAM TOPICAL POWDER [Suspect]
     Active Substance: NYSTATIN
     Route: 061
  25. GENTAMICIN 0.1% TOPICAL OINTMENT [Suspect]
     Active Substance: GENTAMICIN
     Route: 061
  26. ACETAMINOPHEN\HYDROCODONE BITARTRATE [Suspect]
     Active Substance: ACETAMINOPHEN\HYDROCODONE BITARTRATE
     Dosage: HYDROCODONE 10 MG ACETAMINOPHEN 325 MG TABLET ONE TABLET BY MOUTH EVERY SIX HOURS AS NEEDED
     Route: 048
  27. LEXAPRO [Suspect]
     Active Substance: ESCITALOPRAM OXALATE
     Route: 048
  28. BACLOFEN. [Suspect]
     Active Substance: BACLOFEN
     Dosage: 900.2 MCG/DAY
     Route: 037
  29. NORMAL SALINE [Suspect]
     Active Substance: SODIUM CHLORIDE
     Route: 061
  30. CLONIDINE TRANSDERMAL SYSTEM [Suspect]
     Active Substance: CLONIDINE
     Dosage: 0.2 MG/24 HR WEEKLY TRANSDERMAL PATCH ONE PATCH EVERY WEEK
     Route: 062
  31. CITRUCEL [Suspect]
     Active Substance: METHYLCELLULOSE (4000 MPA.S)
     Route: 048
  32. ASPIRIN. [Suspect]
     Active Substance: ASPIRIN
     Route: 048
  33. JUVEN [Suspect]
     Active Substance: .BETA.-HYDROXYISOVALERIC ACID\ARGININE\GLUTAMINE
     Route: 048
  34. CLINDAMYCIN PHOSPHATE 1% TOPICAL [Suspect]
     Active Substance: CLINDAMYCIN PHOSPHATE
     Route: 061

REACTIONS (15)
  - Urine analysis abnormal [Unknown]
  - Autonomic dysreflexia [Unknown]
  - Headache [Unknown]
  - Tremor [Unknown]
  - Muscle spasticity [Unknown]
  - Heart rate increased [Unknown]
  - Muscle spasms [Unknown]
  - Drug withdrawal syndrome [Unknown]
  - Rash [Unknown]
  - Urticaria [Unknown]
  - Pyrexia [Unknown]
  - Hypertonia [Unknown]
  - Blood test abnormal [Unknown]
  - Blood pressure increased [Unknown]
  - Device breakage [None]
